FAERS Safety Report 4844702-1 (Version None)
Quarter: 2005Q4

REPORT INFORMATION
  Report Type: 
  Country: None (occurrence: None)
  Receive Date: 20051125
  Receipt Date: 20051115
  Transmission Date: 20060501
  Serious: Yes (Hospitalization)
  Sender: FDA-Public Use
  Company Number: 2005155650

PATIENT
  Age: 70 Year
  Sex: Male
  Weight: 84 kg

DRUGS (12)
  1. ATORVASTATIN CALCIUM [Suspect]
     Indication: ILL-DEFINED DISORDER
     Dosage: 20 MG (20 MG, 1 IN 1 D), ORAL
     Route: 048
     Dates: end: 20050601
  2. CORDARONE [Suspect]
     Indication: ARRHYTHMIA
     Dosage: ORAL
     Route: 048
     Dates: end: 20050601
  3. LEVOTHYROXINE SODIUM [Suspect]
     Indication: HYPOTHYROIDISM
     Dosage: 0.1 MG (0.1 MG, 1 IN 1 D), ORAL
     Route: 048
     Dates: start: 20050501, end: 20050716
  4. MARCUMAR [Concomitant]
  5. BELOC (METOPROLOL TARTRATE) [Concomitant]
  6. PROSCAR [Concomitant]
  7. TOREM (TORASEMIDE) [Concomitant]
  8. COVERSUM (PERINDOPRIL) [Concomitant]
  9. PRADIF (TAMSULOSIN HYDROCHLORIDE) [Concomitant]
  10. DYRENIUM (TRIAMTERENE) [Concomitant]
  11. MAGNESIUM (MAGNESIUM) [Concomitant]
  12. NEXIUM [Concomitant]

REACTIONS (4)
  - DRUG INTERACTION [None]
  - MUSCULAR WEAKNESS [None]
  - MYALGIA [None]
  - PAIN IN EXTREMITY [None]
